FAERS Safety Report 4730704-2 (Version None)
Quarter: 2005Q3

REPORT INFORMATION
  Report Type: 
  Country: None (occurrence: None)
  Receive Date: 20050725
  Receipt Date: 20050224
  Transmission Date: 20060218
  Serious: No
  Sender: FDA-Public Use
  Company Number: USA050291707

PATIENT
  Age: 10 Year
  Sex: Male
  Weight: 45 kg

DRUGS (2)
  1. STRATTERA [Suspect]
     Indication: ATTENTION DEFICIT/HYPERACTIVITY DISORDER
     Dosage: 60 MG/1 DAY
     Dates: start: 20040101
  2. ADDERALL 10 [Concomitant]

REACTIONS (3)
  - DRUG INEFFECTIVE [None]
  - NERVOUSNESS [None]
  - SOCIAL PROBLEM [None]
